FAERS Safety Report 24110768 (Version 1)
Quarter: 2024Q3

REPORT INFORMATION
  Report Type: Spontaneous
  Country: CA (occurrence: CA)
  Receive Date: 20240718
  Receipt Date: 20240718
  Transmission Date: 20241016
  Serious: Yes (Death, Life-Threatening, Disabling)
  Sender: TEVA
  Company Number: CA-TEVA-VS-3220714

PATIENT
  Age: 36 Year
  Sex: Male

DRUGS (1)
  1. FINASTERIDE [Suspect]
     Active Substance: FINASTERIDE
     Indication: Alopecia
     Route: 048

REACTIONS (12)
  - Anhedonia [Fatal]
  - Anxiety [Fatal]
  - Completed suicide [Fatal]
  - Insomnia [Fatal]
  - Incontinence [Fatal]
  - Tinnitus [Fatal]
  - Depression [Fatal]
  - Fatigue [Fatal]
  - Head discomfort [Fatal]
  - Muscle atrophy [Fatal]
  - Suicidal ideation [Fatal]
  - Testicular pain [Fatal]
